FAERS Safety Report 9130356 (Version 1)
Quarter: 2013Q1

REPORT INFORMATION
  Report Type: Spontaneous
  Country: US (occurrence: US)
  Receive Date: 20130228
  Receipt Date: 20130228
  Transmission Date: 20140127
  Serious: Yes (Other)
  Sender: FDA-Public Use
  Company Number: US-PFIZER INC-2013070107

PATIENT
  Age: 57 Year
  Sex: Male
  Weight: 65.76 kg

DRUGS (3)
  1. RELPAX [Suspect]
     Indication: MIGRAINE
     Dosage: 40 MG, AS NEEDED
     Route: 048
     Dates: start: 2000
  2. ALLEGRA [Concomitant]
     Indication: HYPERSENSITIVITY
     Dosage: UNK
  3. PSEUDOEPHEDRINE [Concomitant]
     Indication: NASAL CONGESTION
     Dosage: UNK

REACTIONS (1)
  - Prostate cancer [Unknown]
